FAERS Safety Report 9386711 (Version 3)
Quarter: 2013Q3

REPORT INFORMATION
  Report Type: Spontaneous
  Country: US (occurrence: US)
  Receive Date: 20130708
  Receipt Date: 20130823
  Transmission Date: 20140515
  Serious: No
  Sender: FDA-Public Use
  Company Number: US-PFIZER INC-2010176603

PATIENT
  Age: 71 Year
  Sex: Female
  Weight: 86.17 kg

DRUGS (8)
  1. NEURONTIN [Suspect]
     Indication: NEUROPATHY PERIPHERAL
     Dosage: 300 MG, 3X/DAY
  2. NEURONTIN [Suspect]
     Dosage: 300 MG, UNK
  3. GABAPENTIN [Suspect]
     Indication: NEUROPATHY PERIPHERAL
     Dosage: UNK
  4. ZETIA [Concomitant]
     Indication: BLOOD CHOLESTEROL INCREASED
     Dosage: 10 MG, 1X/DAY
  5. JANUVIA [Concomitant]
     Indication: DIABETES MELLITUS
     Dosage: 155 MG, AS NEEDED
  6. WARFARIN [Concomitant]
     Indication: COAGULOPATHY
     Dosage: 5 MG, 1X/DAY
  7. LISINOPRIL [Concomitant]
     Indication: HYPERTENSION
     Dosage: 5 MG, 1X/DAY
  8. ACIPHEX [Concomitant]
     Indication: ABDOMINAL DISCOMFORT
     Dosage: 20 MG, 2X/DAY

REACTIONS (5)
  - Drug ineffective [Unknown]
  - Burning sensation [Unknown]
  - Pain [Unknown]
  - Gait disturbance [Unknown]
  - Intentional drug misuse [Unknown]
